FAERS Safety Report 8460786-6 (Version None)
Quarter: 2012Q2

REPORT INFORMATION
  Report Type: 
  Country: None (occurrence: None)
  Receive Date: 20120623
  Receipt Date: 20120615
  Transmission Date: 20120825
  Serious: Yes (Hospitalization)
  Sender: FDA-Public Use
  Company Number: DE-ABBOTT-12P-062-0946207-00

PATIENT
  Sex: Male

DRUGS (2)
  1. TRUVADA [Concomitant]
     Indication: HIV INFECTION
     Dosage: IN THE EVENING
     Dates: start: 20100211
  2. KALETRA [Suspect]
     Indication: HIV INFECTION
     Dates: start: 20100211

REACTIONS (1)
  - CEREBRAL TOXOPLASMOSIS [None]
